FAERS Safety Report 9535614 (Version 1)
Quarter: 2013Q3

REPORT INFORMATION
  Report Type: Spontaneous
  Country: US (occurrence: US)
  Receive Date: 20130919
  Receipt Date: 20130919
  Transmission Date: 20140515
  Serious: Yes (Hospitalization)
  Sender: FDA-Public Use
  Company Number: US-BIOGENIDEC-2013BI089767

PATIENT
  Sex: Female

DRUGS (4)
  1. AVONEX [Suspect]
     Indication: MULTIPLE SCLEROSIS
     Route: 030
     Dates: start: 20120315
  2. ESTRADIOL [Concomitant]
  3. HYDROCODONE- ACETAMINOPHEN [Concomitant]
  4. PRED FORTE [Concomitant]

REACTIONS (2)
  - Fall [Recovered/Resolved]
  - Gait disturbance [Unknown]
